FAERS Safety Report 4462848-7 (Version None)
Quarter: 2004Q3

REPORT INFORMATION
  Report Type: 
  Country: None (occurrence: None)
  Receive Date: 20040929
  Receipt Date: 20040922
  Transmission Date: 20050211
  Serious: Yes (Death)
  Sender: FDA-Public Use
  Company Number: 04-09-1268

PATIENT
  Age: 48 Year
  Sex: Male
  Weight: 72.5755 kg

DRUGS (3)
  1. CLOZAPINE [Suspect]
     Indication: SCHIZOPHRENIA
     Dosage: 600 MG HS ORAL
     Route: 048
     Dates: start: 19960601, end: 20040801
  2. HALDOL [Suspect]
     Indication: SCHIZOPHRENIA
     Dosage: 5MG HS
     Dates: start: 19960601
  3. CLOZAPINE [Suspect]
     Indication: SCHIZOPHRENIA, PARANOID TYPE
     Dosage: 300-400MG QD ORAL
     Route: 048
     Dates: start: 20030301, end: 20040801

REACTIONS (3)
  - CARDIOVASCULAR DISORDER [None]
  - HEART RATE IRREGULAR [None]
  - HEAT STROKE [None]
